FAERS Safety Report 24396879 (Version 1)
Quarter: 2024Q4

REPORT INFORMATION
  Report Type: Spontaneous
  Country: US (occurrence: US)
  Receive Date: 20241004
  Receipt Date: 20241004
  Transmission Date: 20250114
  Serious: Yes (Hospitalization, Other)
  Sender: RECKITT BENCKISER
  Company Number: US-INDIVIOR US-INDV-156682-2024

PATIENT

DRUGS (2)
  1. SUBLOCADE [Suspect]
     Active Substance: BUPRENORPHINE
     Indication: Product used for unknown indication
     Dosage: 100 MILLIGRAM, QMO
     Route: 058
     Dates: start: 20240620
  2. SUBLOCADE [Suspect]
     Active Substance: BUPRENORPHINE

REACTIONS (5)
  - Pulmonary embolism [Not Recovered/Not Resolved]
  - Deep vein thrombosis [Not Recovered/Not Resolved]
  - Pneumonia [Not Recovered/Not Resolved]
  - Bronchitis [Unknown]
  - Dyspnoea [Not Recovered/Not Resolved]

NARRATIVE: CASE EVENT DATE: 20240901
